FAERS Safety Report 22595328 (Version 7)
Quarter: 2023Q4

REPORT INFORMATION
  Report Type: Report from Study
  Country: US (occurrence: US)
  Receive Date: 20230613
  Receipt Date: 20231102
  Transmission Date: 20240109
  Serious: No
  Sender: FDA-Public Use
  Company Number: US-002147023-NVSC2023US133450

PATIENT
  Sex: Male

DRUGS (2)
  1. LEQVIO [Suspect]
     Active Substance: INCLISIRAN SODIUM
     Indication: Product used for unknown indication
     Dosage: UNK
     Route: 058
     Dates: start: 20230419
  2. LEQVIO [Suspect]
     Active Substance: INCLISIRAN SODIUM
     Dosage: UNK (PATIENT RECEIVED THEIR SECOND INJECTION ON 7/26)
     Route: 065

REACTIONS (7)
  - Abdominal pain upper [Unknown]
  - Blood pressure fluctuation [Unknown]
  - Vision blurred [Unknown]
  - Musculoskeletal stiffness [Unknown]
  - Dizziness [Unknown]
  - Blood triglycerides increased [Unknown]
  - Abdominal discomfort [Unknown]
